FAERS Safety Report 25500153 (Version 1)
Quarter: 2025Q3

REPORT INFORMATION
  Report Type: Spontaneous
  Country: EU (occurrence: EU)
  Receive Date: 20250701
  Receipt Date: 20250701
  Transmission Date: 20251020
  Serious: Yes (Death)
  Sender: SERVIER
  Company Number: None

PATIENT

DRUGS (8)
  1. ONCASPAR [Suspect]
     Active Substance: PEGASPARGASE
     Indication: Precursor T-lymphoblastic leukaemia acute
     Route: 042
     Dates: start: 20241129, end: 20241129
  2. ONCASPAR [Suspect]
     Active Substance: PEGASPARGASE
     Route: 042
     Dates: start: 20241213, end: 20241213
  3. DASATINIB [Suspect]
     Active Substance: DASATINIB
     Indication: Precursor T-lymphoblastic leukaemia acute
     Dosage: 100 MG, QD
     Route: 048
     Dates: start: 20241210, end: 20241224
  4. METHOTREXATE (METHOTREXATE SODIUM) [Suspect]
     Active Substance: METHOTREXATE SODIUM
     Indication: Precursor T-lymphoblastic leukaemia acute
     Dosage: 1500 MG, QD
     Route: 042
     Dates: start: 20241125, end: 20241125
  5. CYTARABINE [Suspect]
     Active Substance: CYTARABINE
     Indication: Precursor T-lymphoblastic leukaemia acute
     Route: 037
     Dates: start: 20241125, end: 20241221
  6. DEPO-MEDROL [Suspect]
     Active Substance: METHYLPREDNISOLONE ACETATE
     Indication: Precursor T-lymphoblastic leukaemia acute
     Route: 037
     Dates: start: 20241125, end: 20241221
  7. CYTARABINE [Suspect]
     Active Substance: CYTARABINE
     Indication: Precursor T-lymphoblastic leukaemia acute
     Route: 042
     Dates: start: 20241210, end: 20241212
  8. METHOTREXATE [Suspect]
     Active Substance: METHOTREXATE
     Indication: Precursor T-lymphoblastic leukaemia acute
     Route: 037
     Dates: start: 20241125, end: 20241221

REACTIONS (1)
  - Brain oedema [Fatal]

NARRATIVE: CASE EVENT DATE: 20241226
